FAERS Safety Report 9228296 (Version 2)
Quarter: 2013Q2

REPORT INFORMATION
  Report Type: Spontaneous
  Country: IT (occurrence: None)
  Receive Date: 20130403
  Receipt Date: 20130403
  Transmission Date: 20140414
  Serious: Yes (Other)
  Sender: FDA-Public Use
  Company Number: 7200420

PATIENT
  Age: 33 Year
  Sex: Male

DRUGS (1)
  1. LEVOTHYROXINE [Suspect]
     Indication: AUTOIMMUNE THYROIDITIS

REACTIONS (8)
  - Adrenal insufficiency [None]
  - Metabolic acidosis [None]
  - Diarrhoea [None]
  - Myalgia [None]
  - Nasal congestion [None]
  - Tremor [None]
  - Tachypnoea [None]
  - Confusional state [None]
